FAERS Safety Report 12847753 (Version 2)
Quarter: 2016Q4

REPORT INFORMATION
  Report Type: Spontaneous
  Country: US (occurrence: US)
  Receive Date: 20161014
  Receipt Date: 20161121
  Transmission Date: 20170207
  Serious: No
  Sender: FDA-Public Use
  Company Number: US-JNJFOC-20160917456

PATIENT
  Age: 60 Year
  Sex: Female
  Weight: 74.84 kg

DRUGS (2)
  1. TYLENOL EXTRA STRENGTH [Suspect]
     Active Substance: ACETAMINOPHEN
     Indication: MIGRAINE
     Dosage: 1-2 PILLS INTERMITANTLY
     Route: 048
     Dates: start: 20160915
  2. TYLENOL EXTRA STRENGTH [Suspect]
     Active Substance: ACETAMINOPHEN
     Indication: MIGRAINE
     Route: 048
     Dates: start: 201608

REACTIONS (3)
  - Intentional underdose [Recovered/Resolved]
  - Drug effect incomplete [Unknown]
  - Abdominal discomfort [Recovered/Resolved]

NARRATIVE: CASE EVENT DATE: 201608
